FAERS Safety Report 5070547-6 (Version None)
Quarter: 2006Q3

REPORT INFORMATION
  Report Type: 
  Country: None (occurrence: None)
  Receive Date: 20060714
  Receipt Date: 20060420
  Transmission Date: 20061208
  Serious: No
  Sender: FDA-Public Use
  Company Number: 2006SP001769

PATIENT
  Age: 58 Year
  Sex: Female
  Weight: 68.0396 kg

DRUGS (5)
  1. LUNESTA [Suspect]
     Indication: INSOMNIA
     Dosage: SEE IMAGE
     Route: 048
     Dates: start: 20060419, end: 20060419
  2. LUNESTA [Suspect]
     Indication: INSOMNIA
     Dosage: SEE IMAGE
     Route: 048
     Dates: start: 20060423
  3. XANAX [Concomitant]
  4. WELLBUTRIN [Concomitant]
  5. VITAMINS [Concomitant]

REACTIONS (4)
  - ASTHENIA [None]
  - DYSGEUSIA [None]
  - NAUSEA [None]
  - SOMNOLENCE [None]
